FAERS Safety Report 10690798 (Version 1)
Quarter: 2015Q1

REPORT INFORMATION
  Report Type: Spontaneous
  Country: US (occurrence: US)
  Receive Date: 20150105
  Receipt Date: 20150105
  Transmission Date: 20150720
  Serious: Yes (Death, Other)
  Sender: FDA-Public Use
  Company Number: US-BAYER-2014-191477

PATIENT
  Sex: Female

DRUGS (5)
  1. OPTIMARK [Suspect]
     Active Substance: GADOVERSETAMIDE
  2. MULTIHANCE [Suspect]
     Active Substance: GADOBENATE DIMEGLUMINE
  3. OMNISCAN [Suspect]
     Active Substance: GADODIAMIDE
  4. PROHANCE [Suspect]
     Active Substance: GADOTERIDOL
  5. MAGNEVIST [Suspect]
     Active Substance: GADOPENTETATE DIMEGLUMINE

REACTIONS (7)
  - Pain [None]
  - Emotional distress [None]
  - Anxiety [None]
  - Fibrosis [Fatal]
  - Nephrogenic systemic fibrosis [Fatal]
  - Injury [None]
  - General physical health deterioration [None]

NARRATIVE: CASE EVENT DATE: 20131228
